FAERS Safety Report 5899534-2 (Version None)
Quarter: 2008Q3

REPORT INFORMATION
  Report Type: 
  Country: None (occurrence: None)
  Receive Date: 20080926
  Receipt Date: 20080826
  Transmission Date: 20090109
  Serious: No
  Sender: FDA-Public Use
  Company Number: US-BAYER-200832701NA

PATIENT
  Sex: Female

DRUGS (1)
  1. LEVITRA [Suspect]
     Indication: RAYNAUD'S PHENOMENON
     Dosage: TOTAL DAILY DOSE: 20 MG  UNIT DOSE: 20 MG
     Route: 048

REACTIONS (1)
  - NO ADVERSE EVENT [None]
